FAERS Safety Report 6166715-2 (Version None)
Quarter: 2009Q2

REPORT INFORMATION
  Report Type: 
  Country: None (occurrence: None)
  Receive Date: 20090424
  Receipt Date: 20090417
  Transmission Date: 20091009
  Serious: Yes (Hospitalization)
  Sender: FDA-Public Use
  Company Number: US-PFIZER INC-2008045341

PATIENT
  Sex: Male
  Weight: 111.11 kg

DRUGS (4)
  1. GEODON [Suspect]
     Indication: PSYCHOTIC DISORDER
     Route: 048
     Dates: start: 20080507
  2. TRAZODONE [Concomitant]
     Dosage: 2 QHS
     Dates: start: 20070101
  3. CITALOPRAM HYDROBROMIDE [Concomitant]
     Dates: start: 20070101
  4. LORAZEPAM [Concomitant]
     Dates: start: 20080513

REACTIONS (2)
  - HYPERTENSION [None]
  - PANCREATITIS ACUTE [None]
